FAERS Safety Report 8144180-3 (Version None)
Quarter: 2012Q1

REPORT INFORMATION
  Report Type: 
  Country: None (occurrence: None)
  Receive Date: 20120217
  Receipt Date: 20120213
  Transmission Date: 20120608
  Serious: Yes (Hospitalization, Other)
  Sender: FDA-Public Use
  Company Number: US-VERTEX PHARMACEUTICALS INC.-AE-2012-002149

PATIENT
  Sex: Female

DRUGS (5)
  1. PEGASYS [Concomitant]
     Indication: HEPATITIS C
     Dates: start: 20111201
  2. PEGASYS [Concomitant]
  3. RIBAVIRIN [Concomitant]
     Indication: HEPATITIS C
     Dates: start: 20111201
  4. RIBAVIRIN [Concomitant]
  5. INCIVEK [Suspect]
     Indication: HEPATITIS C
     Dates: start: 20111201

REACTIONS (4)
  - LOSS OF CONSCIOUSNESS [None]
  - LABORATORY TEST ABNORMAL [None]
  - ARTHRALGIA [None]
  - ANAEMIA [None]
